FAERS Safety Report 8892282 (Version 1)
Quarter: 2012Q4

REPORT INFORMATION
  Report Type: Spontaneous
  Country: US (occurrence: None)
  Receive Date: 20121105
  Receipt Date: 20121105
  Transmission Date: 20130627
  Serious: Yes (Hospitalization)
  Sender: FDA-Public Use
  Company Number: None

PATIENT
  Age: 59 Year
  Sex: Male
  Weight: 117.94 kg

DRUGS (1)
  1. WARFARIN [Suspect]
     Dosage: x3 wk
     Route: 048
     Dates: start: 20050615, end: 20121102

REACTIONS (4)
  - Overdose [None]
  - Haemorrhage [None]
  - Incorrect dose administered [None]
  - International normalised ratio increased [None]
